FAERS Safety Report 9833235 (Version 2)
Quarter: 2014Q1

REPORT INFORMATION
  Report Type: Report from Study
  Country: US (occurrence: US)
  Receive Date: 20140121
  Receipt Date: 20140214
  Transmission Date: 20141002
  Serious: Yes (Hospitalization)
  Sender: FDA-Public Use
  Company Number: US-ACTELION-A-US2014-93651

PATIENT
  Age: 42 Year
  Sex: Female

DRUGS (13)
  1. TRACLEER [Suspect]
     Indication: PULMONARY ARTERIAL HYPERTENSION
     Dosage: 125 MG, BID
     Route: 048
     Dates: start: 20131030
  2. COUMADIN [Suspect]
     Dosage: 5 MG, QD
     Route: 048
  3. MORPHINE [Concomitant]
     Indication: PAIN
     Dosage: 15 MG, Q4HRS PRN
  4. OMEPRAZOLE [Concomitant]
     Dosage: 20 MG, BID
  5. XANAX [Concomitant]
     Indication: INSOMNIA
     Dosage: 0.25 MG, QPM
  6. CLONAZEPAM [Concomitant]
     Dosage: 0.5 MG, BID
  7. LASIX [Concomitant]
     Dosage: 20 MG, QD
  8. DUONEB [Concomitant]
     Indication: DYSPNOEA
     Dosage: UNK, Q4HRS
  9. SYNTHROID [Concomitant]
     Dosage: 125 MCG, QD
     Route: 048
  10. REGLAN [Concomitant]
     Dosage: 10 MG, TID
  11. PERCOCET [Concomitant]
     Indication: PAIN
     Dosage: 1 UNK, Q4HRS
  12. SPIRONOLACTONE [Concomitant]
     Dosage: 100 MG, QD
  13. VENTOLIN [Concomitant]
     Indication: DYSPNOEA
     Dosage: UNK, Q6HRS

REACTIONS (10)
  - Intracardiac thrombus [Recovering/Resolving]
  - Bronchitis [Recovering/Resolving]
  - Gastrointestinal haemorrhage [Recovering/Resolving]
  - Haematemesis [Recovering/Resolving]
  - Haematochezia [Recovering/Resolving]
  - Coagulopathy [Recovering/Resolving]
  - Anaemia [Recovering/Resolving]
  - Thrombocytopenia [Recovering/Resolving]
  - Gastritis [Recovering/Resolving]
  - Hypokalaemia [Recovering/Resolving]
